FAERS Safety Report 8772494 (Version 2)
Quarter: 2012Q4

REPORT INFORMATION
  Report Type: 
  Country: JP (occurrence: JP)
  Receive Date: 20120905
  Receipt Date: 20120914
  Transmission Date: 20130627
  Serious: Yes (Other)
  Sender: FDA-Public Use
  Company Number: JP-PFIZER INC-2012214581

PATIENT
  Age: 66 Year
  Sex: Male

DRUGS (1)
  1. GABAPEN [Suspect]
     Indication: HYPOAESTHESIA
     Dosage: UNK
     Route: 048
     Dates: start: 201208, end: 2012

REACTIONS (2)
  - Blood glucose decreased [Recovered/Resolved]
  - Confusional state [Recovered/Resolved]
